FAERS Safety Report 5441043-9 (Version None)
Quarter: 2007Q3

REPORT INFORMATION
  Report Type: 
  Country: None (occurrence: None)
  Receive Date: 20070831
  Receipt Date: 20070820
  Transmission Date: 20080115
  Serious: Yes (Other)
  Sender: FDA-Public Use
  Company Number: US-PFIZER INC-2007043946

PATIENT
  Sex: Female

DRUGS (1)
  1. CELEBREX [Suspect]

REACTIONS (4)
  - ABDOMINAL PAIN UPPER [None]
  - BLINDNESS [None]
  - CARDIOVASCULAR DISORDER [None]
  - RECTAL HAEMORRHAGE [None]
